FAERS Safety Report 24421541 (Version 1)
Quarter: 2024Q4

REPORT INFORMATION
  Report Type: Spontaneous
  Country: CA (occurrence: CA)
  Receive Date: 20241010
  Receipt Date: 20241010
  Transmission Date: 20250115
  Serious: Yes (Other)
  Sender: ALK-ABELLO
  Company Number: CA-ALK-ABELLO A/S-2024AA003749

PATIENT

DRUGS (13)
  1. BETULA PENDULA POLLEN [Suspect]
     Active Substance: BETULA PENDULA POLLEN
     Indication: Hypersensitivity
     Dosage: UNK
     Dates: start: 202212
  2. AMBROSIA ARTEMISIIFOLIA POLLEN\AMBROSIA TRIFIDA POLLEN [Suspect]
     Active Substance: AMBROSIA ARTEMISIIFOLIA POLLEN\AMBROSIA TRIFIDA POLLEN
     Indication: Hypersensitivity
     Dosage: UNK
     Dates: start: 202212
  3. ARTEMISIA VULGARIS POLLEN [Suspect]
     Active Substance: ARTEMISIA VULGARIS POLLEN
     Indication: Hypersensitivity
     Dosage: UNK
     Dates: start: 202212
  4. ACER RUBRUM POLLEN [Suspect]
     Active Substance: ACER RUBRUM POLLEN
     Indication: Hypersensitivity
     Dosage: UNK
     Dates: start: 202212
  5. ALNUS INCANA SUBSP. RUGOSA POLLEN [Suspect]
     Active Substance: ALNUS INCANA SUBSP. RUGOSA POLLEN
     Indication: Hypersensitivity
     Dosage: UNK
     Dates: start: 202212
  6. DERMATOPHAGOIDES FARINAE\DERMATOPHAGOIDES PTERONYSSINUS [Suspect]
     Active Substance: DERMATOPHAGOIDES FARINAE\DERMATOPHAGOIDES PTERONYSSINUS
     Indication: Hypersensitivity
     Dosage: UNK
     Dates: start: 202212
  7. Breon [Concomitant]
     Indication: Asthma
     Dosage: 1 PUFF EVERY MORNING+ 1 PUFF AT NIGHT X 14 DAYS
  8. MONTELUKAST [Concomitant]
     Active Substance: MONTELUKAST
     Dosage: 1 PILL EVERY DAY (USUAL ADULT DOSAGE)
  9. BILASTINE [Concomitant]
     Active Substance: BILASTINE
     Dosage: 20 MILLIGRAM, BID
  10. ALBUTEROL [Concomitant]
     Active Substance: ALBUTEROL
     Dosage: 2 PUFFS EVERY 4HR IF NEEDED
  11. ESOMEPRAZOLE [Concomitant]
     Active Substance: ESOMEPRAZOLE
     Dosage: 40 MILLIGRAM, QD (EVERY MORNING)
  12. MOMETASONE [Concomitant]
     Active Substance: MOMETASONE
     Dosage: 2 PUFFS TWICE A DAY
     Route: 045
  13. PREDNISONE [Concomitant]
     Active Substance: PREDNISONE
     Dosage: IN CASE OF EXACERBATION: 30MG EVERY DAY FOR 5 DAYS, THEN DECREASING DOSE OF 5 MG EVERY MORNING UNTIL

REACTIONS (4)
  - Erythema [Recovered/Resolved]
  - Abdominal pain [Recovered/Resolved]
  - Nausea [Recovered/Resolved]
  - Erythema [Recovered/Resolved]

NARRATIVE: CASE EVENT DATE: 20230201
